FAERS Safety Report 9226691 (Version 1)
Quarter: 2013Q2

REPORT INFORMATION
  Report Type: Spontaneous
  Country: US (occurrence: US)
  Receive Date: 20130412
  Receipt Date: 20130412
  Transmission Date: 20140414
  Serious: No
  Sender: FDA-Public Use
  Company Number: US-PFIZER INC-2013113862

PATIENT
  Age: 58 Year
  Sex: Male
  Weight: 95.24 kg

DRUGS (2)
  1. VIAGRA [Suspect]
     Indication: ERECTILE DYSFUNCTION
     Dosage: 100 MG, AS NEEDED
  2. GLIPIZIDE [Concomitant]
     Indication: DIABETES MELLITUS
     Dosage: THREE PILLS IN A DAY

REACTIONS (2)
  - Pain in extremity [Unknown]
  - Drug ineffective [Unknown]
